FAERS Safety Report 9654745 (Version 2)
Quarter: 2013Q4

REPORT INFORMATION
  Report Type: Spontaneous
  Country: US (occurrence: US)
  Receive Date: 20131029
  Receipt Date: 20131029
  Transmission Date: 20140711
  Serious: Yes (Other)
  Sender: FDA-Public Use
  Company Number: US-NAPPMUNDI-USA-2012-0085551

PATIENT
  Age: 43 Year
  Sex: Male

DRUGS (2)
  1. OXYCONTIN TABLETS [Suspect]
     Indication: SURGERY
     Dosage: UNK UNK, SEE TEXT
     Route: 048
     Dates: start: 2002
  2. OXYCONTIN TABLETS [Suspect]
     Indication: PAIN

REACTIONS (1)
  - Drug dependence [Recovered/Resolved]
